FAERS Safety Report 7559042-X (Version None)
Quarter: 2011Q2

REPORT INFORMATION
  Report Type: 
  Country: None (occurrence: None)
  Receive Date: 20110621
  Receipt Date: 20110616
  Transmission Date: 20111010
  Serious: No
  Sender: FDA-Public Use
  Company Number: US-PFIZER INC-2007013812

PATIENT
  Sex: Female
  Weight: 74.83 kg

DRUGS (4)
  1. CHANTIX [Suspect]
     Dosage: 1MG 2X/DAY
     Route: 048
     Dates: start: 20070101
  2. LIPITOR [Concomitant]
     Dosage: UNK
  3. CHANTIX [Suspect]
     Indication: SMOKING CESSATION THERAPY
     Dosage: 0.5 MG, 1X/DAY
     Route: 048
  4. CHANTIX [Suspect]
     Dosage: 0.5 MG, 2X/DAY
     Route: 048
     Dates: end: 20070101

REACTIONS (3)
  - GASTRIC DISORDER [None]
  - ABDOMINAL PAIN UPPER [None]
  - NAUSEA [None]
